FAERS Safety Report 25825830 (Version 3)
Quarter: 2025Q4

REPORT INFORMATION
  Report Type: Report from Study
  Country: GB (occurrence: GB)
  Receive Date: 20250919
  Receipt Date: 20251020
  Transmission Date: 20260118
  Serious: Yes (Hospitalization, Other)
  Sender: AMGEN
  Company Number: GB-Vifor (International) Inc.-VIT-2024-07398

PATIENT
  Age: 79 Year
  Sex: Male
  Weight: 69 kg

DRUGS (26)
  1. AVACOPAN [Suspect]
     Active Substance: AVACOPAN
     Indication: Anti-neutrophil cytoplasmic antibody positive vasculitis
     Dosage: 30,MG,BID
     Route: 048
     Dates: start: 20240416, end: 202504
  2. PREDNISOLONE [Concomitant]
     Active Substance: PREDNISOLONE
     Indication: Anti-neutrophil cytoplasmic antibody positive vasculitis
     Dosage: 30 MG, OD
     Route: 048
     Dates: start: 20240416, end: 20240422
  3. PREDNISOLONE [Concomitant]
     Active Substance: PREDNISOLONE
     Dosage: 60 MG, OD
     Route: 048
     Dates: start: 202404, end: 20240415
  4. PREDNISOLONE [Concomitant]
     Active Substance: PREDNISOLONE
     Dosage: 25 MG, OD
     Route: 048
     Dates: start: 20240423, end: 202404
  5. PREDNISOLONE [Concomitant]
     Active Substance: PREDNISOLONE
     Dosage: 20 MG, OD
     Route: 048
     Dates: start: 20240508, end: 20240524
  6. PREDNISOLONE [Concomitant]
     Active Substance: PREDNISOLONE
     Dosage: 15 MG, OD
     Route: 048
     Dates: start: 20240525, end: 20240608
  7. PREDNISOLONE [Concomitant]
     Active Substance: PREDNISOLONE
     Dosage: 10 MG, OD
     Route: 048
     Dates: start: 20240609, end: 20240617
  8. PREDNISOLONE [Concomitant]
     Active Substance: PREDNISOLONE
     Dosage: 5 MG, OD
     Route: 048
     Dates: start: 20240618, end: 20240625
  9. PREDNISOLONE [Concomitant]
     Active Substance: PREDNISOLONE
     Dosage: 3 MG, OD
     Route: 048
     Dates: start: 20240704, end: 20240719
  10. PREDNISOLONE [Concomitant]
     Active Substance: PREDNISOLONE
     Dosage: 10 MG, OD
     Route: 048
     Dates: start: 20240720, end: 202410
  11. PREDNISOLONE [Concomitant]
     Active Substance: PREDNISOLONE
     Dosage: 4 MG, OD
     Route: 048
     Dates: start: 20240626, end: 20240703
  12. PREDNISOLONE [Concomitant]
     Active Substance: PREDNISOLONE
     Dosage: 5 MG, OD
     Route: 048
     Dates: start: 202410, end: 202412
  13. PREDNISOLONE [Concomitant]
     Active Substance: PREDNISOLONE
     Dosage: 5 MG, OD
     Route: 048
     Dates: start: 20240618, end: 20240625
  14. RITUXIMAB [Concomitant]
     Active Substance: RITUXIMAB
     Indication: Anti-neutrophil cytoplasmic antibody positive vasculitis
     Dosage: 1 G, SINGLE
     Route: 040
     Dates: start: 20240412, end: 20240412
  15. RITUXIMAB [Concomitant]
     Active Substance: RITUXIMAB
     Dosage: 1 G, SINGLE
     Route: 040
     Dates: start: 20240429, end: 20240429
  16. RITUXIMAB [Concomitant]
     Active Substance: RITUXIMAB
     Dosage: 1000 MG, SINGLE
     Route: 040
     Dates: start: 20241015, end: 20241015
  17. RITUXIMAB [Concomitant]
     Active Substance: RITUXIMAB
     Dosage: 1000 MG, SINGLE
     Route: 040
     Dates: start: 20240322, end: 20240322
  18. RITUXIMAB [Concomitant]
     Active Substance: RITUXIMAB
     Dosage: 1000 MG, SINGLE
     Route: 040
     Dates: start: 20250404, end: 20250404
  19. METHYLPREDNISOLONE [Concomitant]
     Active Substance: METHYLPREDNISOLONE
     Indication: Anti-neutrophil cytoplasmic antibody positive vasculitis
     Dosage: 100 MG, SINGLE
     Route: 040
     Dates: start: 20240412, end: 20240412
  20. METHYLPREDNISOLONE [Concomitant]
     Active Substance: METHYLPREDNISOLONE
     Indication: Premedication
     Dosage: 100 MG, SINGLE
     Route: 040
     Dates: start: 20240429, end: 20240429
  21. METHYLPREDNISOLONE [Concomitant]
     Active Substance: METHYLPREDNISOLONE
     Dosage: 100 MG, SINGLE
     Route: 040
     Dates: start: 20241015, end: 20241015
  22. METHYLPREDNISOLONE [Concomitant]
     Active Substance: METHYLPREDNISOLONE
     Dosage: 100 MG, SINGLE
     Route: 040
     Dates: start: 20250404, end: 20250404
  23. METHYLPREDNISOLONE [Concomitant]
     Active Substance: METHYLPREDNISOLONE
     Dosage: 500 MG, QD (DAILY FOR 3 DAYS)
     Route: 040
     Dates: start: 202404, end: 202404
  24. METHYLPREDNISOLONE [Concomitant]
     Active Substance: METHYLPREDNISOLONE
     Dosage: 100 MG, SINGLE
     Route: 040
     Dates: start: 20241015, end: 20241015
  25. METHYLPREDNISOLONE [Concomitant]
     Active Substance: METHYLPREDNISOLONE
     Dosage: 100 MG, SINGLE
     Route: 040
     Dates: start: 20250404, end: 20250404
  26. CYCLOPHOSPHAMIDE [Concomitant]
     Active Substance: CYCLOPHOSPHAMIDE
     Indication: Anti-neutrophil cytoplasmic antibody positive vasculitis
     Dosage: 480 MG (COURSE OF 2 INFUSIONS)
     Route: 040
     Dates: start: 20240412, end: 20240514

REACTIONS (8)
  - Haemoglobin decreased [Recovered/Resolved]
  - Vasculitis [Recovering/Resolving]
  - Chronic kidney disease [Recovering/Resolving]
  - Nocturia [Recovered/Resolved]
  - Hypoacusis [Not Recovered/Not Resolved]
  - Proctitis [Not Recovered/Not Resolved]
  - Pulmonary mass [Not Recovered/Not Resolved]
  - Gastroenteritis [Recovered/Resolved]

NARRATIVE: CASE EVENT DATE: 20240604
